FAERS Safety Report 5846626-X (Version None)
Quarter: 2008Q3

REPORT INFORMATION
  Report Type: 
  Country: None (occurrence: None)
  Receive Date: 20080815
  Receipt Date: 20080811
  Transmission Date: 20090109
  Serious: Yes (Other)
  Sender: FDA-Public Use
  Company Number: A0742002A

PATIENT
  Age: 64 Year
  Sex: Female

DRUGS (16)
  1. ADVAIR DISKUS 100/50 [Suspect]
     Indication: CHRONIC OBSTRUCTIVE PULMONARY DISEASE
     Dosage: 2PUFF TWICE PER DAY
     Route: 055
     Dates: start: 19970101, end: 20071101
  2. ADVAIR DISKUS 100/50 [Suspect]
     Dosage: 2PUFF TWICE PER DAY
     Route: 055
     Dates: start: 20071101
  3. ALBUTEROL [Concomitant]
  4. IPRATROPIUM BROMIDE [Concomitant]
  5. NEBULIZER [Concomitant]
  6. CARVEDILOL [Concomitant]
  7. DIGOXIN [Concomitant]
  8. RAMIPRIL [Concomitant]
  9. BUSPIRONE HCL [Concomitant]
  10. XANAX [Concomitant]
  11. TRAMADOL HCL [Concomitant]
  12. POTASSIUM CHLORIDE [Concomitant]
  13. TORSEMIDE [Concomitant]
  14. FOSAMAX [Concomitant]
  15. XOPENEX [Concomitant]
  16. PROVENTIL [Concomitant]

REACTIONS (6)
  - CARDIAC ARREST [None]
  - COUGH [None]
  - DRUG INEFFECTIVE [None]
  - MYOCARDIAL INFARCTION [None]
  - RESPIRATORY FAILURE [None]
  - THERAPEUTIC RESPONSE UNEXPECTED [None]
